FAERS Safety Report 6166691-2 (Version None)
Quarter: 2009Q2

REPORT INFORMATION
  Report Type: 
  Country: None (occurrence: None)
  Receive Date: 20090424
  Receipt Date: 20090414
  Transmission Date: 20091009
  Serious: Yes (Death)
  Sender: FDA-Public Use
  Company Number: US-PFIZER INC-2009197931

PATIENT
  Sex: Male

DRUGS (2)
  1. ALPRAZOLAM [Suspect]
  2. OXYCODONE [Suspect]

REACTIONS (1)
  - POISONING [None]
